FAERS Safety Report 9917805 (Version 1)
Quarter: 2014Q1

REPORT INFORMATION
  Report Type: Spontaneous
  Country: US (occurrence: US)
  Receive Date: 20140221
  Receipt Date: 20140221
  Transmission Date: 20141002
  Serious: No
  Sender: FDA-Public Use
  Company Number: US-PFIZER INC-2014046900

PATIENT
  Sex: Female

DRUGS (12)
  1. TAPAZOLE [Suspect]
     Indication: BASEDOW^S DISEASE
     Dosage: 10 MG, 1X/DAY
     Route: 048
     Dates: start: 2002
  2. TAPAZOLE [Suspect]
     Dosage: ONE 10MG AND ONE 5MG TABLET IN A DAY
     Route: 048
  3. TAPAZOLE [Suspect]
     Dosage: TWO 10MG TABLETS IN A DAY
     Route: 048
  4. TAPAZOLE [Suspect]
     Dosage: THREE 10MG TABLETS IN A DAY
     Route: 048
  5. TAPAZOLE [Suspect]
     Dosage: UNKNOWN DOSE IN A DAY
     Route: 048
  6. TAPAZOLE [Suspect]
     Dosage: TWO 10MG TABLETS IN A DAY
     Route: 048
  7. ADVAIR [Concomitant]
     Indication: ASTHMA
     Dosage: 250/50 MG, UNK
  8. DYMISTA [Concomitant]
     Indication: ASTHMA
     Dosage: UNK
     Route: 045
  9. XOLAIR [Concomitant]
     Indication: ASTHMA
     Dosage: UNK
  10. AVAPRO [Concomitant]
     Indication: HYPERTENSION
     Dosage: UNK
  11. ALLEGRA [Concomitant]
     Dosage: 180 MG, UNK
  12. VITAMIN D3 [Concomitant]
     Dosage: 50000 UNITS, UNK

REACTIONS (12)
  - Blood thyroid stimulating hormone abnormal [Unknown]
  - Tri-iodothyronine abnormal [Unknown]
  - Thyroxine abnormal [Unknown]
  - Blood thyroid stimulating hormone increased [Unknown]
  - Tri-iodothyronine increased [Unknown]
  - Thyroxine increased [Unknown]
  - Thyroid disorder [Unknown]
  - Malaise [Unknown]
  - Lethargy [Unknown]
  - Mood swings [Unknown]
  - Weight increased [Unknown]
  - Tooth infection [Unknown]
